FAERS Safety Report 4919011-2 (Version None)
Quarter: 2006Q1

REPORT INFORMATION
  Report Type: 
  Country: None (occurrence: None)
  Receive Date: 20060222
  Receipt Date: 20060210
  Transmission Date: 20060701
  Serious: Yes (Life-Threatening, Hospitalization)
  Sender: FDA-Public Use
  Company Number: FR-BRISTOL-MYERS SQUIBB COMPANY-13288543

PATIENT
  Age: 65 Year
  Sex: Male

DRUGS (1)
  1. ERBITUX [Suspect]
     Indication: COLORECTAL CANCER
     Route: 042
     Dates: start: 20051221, end: 20060105

REACTIONS (6)
  - CHEST PAIN [None]
  - ELECTROCARDIOGRAM REPOLARISATION ABNORMALITY [None]
  - HYPERSENSITIVITY [None]
  - HYPERTENSION [None]
  - OXYGEN SATURATION DECREASED [None]
  - VASOCONSTRICTION [None]
